FAERS Safety Report 9671960 (Version 1)
Quarter: 2013Q4

REPORT INFORMATION
  Report Type: Spontaneous
  Country: KR (occurrence: None)
  Receive Date: 20131104
  Receipt Date: 20131104
  Transmission Date: 20140711
  Serious: Yes (Other)
  Sender: FDA-Public Use
  Company Number: 2013P1020432

PATIENT
  Age: 75 Year
  Sex: Female

DRUGS (6)
  1. OXYCODONE [Suspect]
     Indication: POSTOPERATIVE ANALGESIA
     Route: 048
  2. PREGABALIN [Suspect]
     Indication: POSTOPERATIVE ANALGESIA
     Route: 048
  3. FENTANYL [Concomitant]
  4. KETOROLAC [Concomitant]
  5. CELECOXIB [Concomitant]
  6. RAMOSETRON HYDROCHLORIDE [Concomitant]

REACTIONS (10)
  - Hypoxia [None]
  - Bundle branch block right [None]
  - Left atrial dilatation [None]
  - Clonus [None]
  - Muscle rigidity [None]
  - Sinus tachycardia [None]
  - Agitation [None]
  - Confusional state [None]
  - Disorientation [None]
  - Cognitive disorder [None]
